FAERS Safety Report 10110981 (Version 3)
Quarter: 2014Q4

REPORT INFORMATION
  Report Type: Spontaneous
  Country: US (occurrence: None)
  Receive Date: 20140421
  Receipt Date: 20141020
  Transmission Date: 20150528
  Serious: No
  Sender: FDA-Public Use
  Company Number: AEGR000328

PATIENT
  Age: 62 Year
  Sex: Female
  Weight: 97.5 kg

DRUGS (13)
  1. CALCIUM + D ( CALCIUM CARBONATE, COLECALCIFEROL) [Concomitant]
  2. DOCUSATE SODIUM ( DOCUSATE SODIUM) [Concomitant]
  3. VITAMIN D3 ( COLECALCIFEROL) [Concomitant]
  4. CALCIUM (CALCIUM) [Concomitant]
     Active Substance: CALCIUM
  5. ROSUVASTATIN [Concomitant]
     Active Substance: ROSUVASTATIN
  6. VITAMIN E [Concomitant]
     Active Substance: .ALPHA.-TOCOPHEROL
  7. JUXTAPID [Suspect]
     Active Substance: LOMITAPIDE MESYLATE
     Indication: TYPE IIA HYPERLIPIDAEMIA
     Route: 048
     Dates: start: 201401, end: 201402
  8. CHONDROITIN SULFATE (BOVINE)\GLUCOSAMINE SULFATE [Concomitant]
     Active Substance: CHONDROITIN SULFATE (BOVINE)\GLUCOSAMINE SULFATE
  9. HYDROCHLOROTHIAZIDE ( HYDROCHLOROTHIAZIDE) [Concomitant]
     Active Substance: HYDROCHLOROTHIAZIDE
  10. MAGNESIUM OXIDE ( MAGNESIUM OXIDE) [Concomitant]
  11. RED YEAST RICE ( MONASCUS PURPUREUS W/UBIDECARENONE) [Concomitant]
  12. COENZYME Q10 ( UBIDECARENONE) [Concomitant]
  13. OMEGA 3-6-9 (FISH OIL, TOCOPHEROL) [Concomitant]

REACTIONS (7)
  - Headache [None]
  - Back pain [None]
  - Fatigue [None]
  - Diarrhoea [None]
  - Weight decreased [None]
  - Abdominal discomfort [None]
  - Muscle spasms [None]

NARRATIVE: CASE EVENT DATE: 20140106
